FAERS Safety Report 19756541 (Version 1)
Quarter: 2021Q3

REPORT INFORMATION
  Report Type: Report from Study
  Country: None (occurrence: CA)
  Receive Date: 20210828
  Receipt Date: 20210828
  Transmission Date: 20211014
  Serious: Yes (Hospitalization, Other)
  Sender: FDA-Public Use
  Company Number: CA-ABBVIE-21K-028-4031314-00

PATIENT
  Age: 71 Year
  Sex: Female

DRUGS (1)
  1. HUMIRA [Suspect]
     Active Substance: ADALIMUMAB
     Indication: CROHN^S DISEASE
     Route: 058
     Dates: start: 20150218, end: 202107

REACTIONS (24)
  - Nausea [Unknown]
  - Gastrointestinal disorder [Unknown]
  - Intestinal resection [Unknown]
  - Abdominal pain [Unknown]
  - Stenosis [Unknown]
  - Small intestinal obstruction [Unknown]
  - Vomiting [Unknown]
  - Abnormal faeces [Unknown]
  - Blood pressure increased [Unknown]
  - Ulcer [Unknown]
  - Appendix disorder [Unknown]
  - Abdominal discomfort [Unknown]
  - Crohn^s disease [Unknown]
  - Small intestinal haemorrhage [Unknown]
  - C-reactive protein increased [Recovered/Resolved]
  - Diaphragmatic disorder [Unknown]
  - Small intestinal stenosis [Unknown]
  - Intestinal fibrosis [Unknown]
  - Abdominal distension [Unknown]
  - Osteoporosis [Unknown]
  - Large intestine polyp [Unknown]
  - Hypertension [Unknown]
  - Cholecystectomy [Unknown]
  - Intestinal dilatation [Unknown]

NARRATIVE: CASE EVENT DATE: 202107
